FAERS Safety Report 4613545-6 (Version None)
Quarter: 2005Q1

REPORT INFORMATION
  Report Type: 
  Country: None (occurrence: None)
  Receive Date: 20050318
  Receipt Date: 20050318
  Transmission Date: 20050727
  Serious: Yes (Hospitalization)
  Sender: FDA-Public Use
  Company Number: None

PATIENT
  Age: 53 Year
  Sex: Male
  Weight: 87.5 kg

DRUGS (8)
  1. FLUCONAZOLE [Suspect]
     Indication: NEUTROPENIA
     Dosage: NEUTROPRENIC PROPH DOSES
     Dates: start: 20041108, end: 20041201
  2. FLUCONAZOLE [Suspect]
     Indication: PROPHYLAXIS
     Dosage: NEUTROPRENIC PROPH DOSES
     Dates: start: 20041108, end: 20041201
  3. GATIFLOXACIN [Suspect]
     Indication: NEUTROPENIA
     Dosage: NEUTROPRENIC PROPH DOSES
     Dates: start: 20041108, end: 20041201
  4. GATIFLOXACIN [Suspect]
     Indication: PROPHYLAXIS
     Dosage: NEUTROPRENIC PROPH DOSES
     Dates: start: 20041108, end: 20041201
  5. BACTRIM [Suspect]
     Indication: NEUTROPENIA
     Dosage: NEUTROPRENIC PROPH DOSES
     Dates: start: 20041108, end: 20041201
  6. BACTRIM [Suspect]
     Indication: PROPHYLAXIS
     Dosage: NEUTROPRENIC PROPH DOSES
     Dates: start: 20041108, end: 20041201
  7. VALACYCLOVIR HCL [Suspect]
     Indication: NEUTROPENIA
     Dosage: NEUTROPRENIC PROPH DOSES
     Dates: start: 20041108, end: 20041201
  8. VALACYCLOVIR HCL [Suspect]
     Indication: PROPHYLAXIS
     Dosage: NEUTROPRENIC PROPH DOSES
     Dates: start: 20041108, end: 20041201

REACTIONS (2)
  - RASH GENERALISED [None]
  - RASH MACULAR [None]
